FAERS Safety Report 6322243-2 (Version None)
Quarter: 2009Q3

REPORT INFORMATION
  Report Type: 
  Country: None (occurrence: None)
  Receive Date: 20090814
  Receipt Date: 20090107
  Transmission Date: 20100115
  Serious: Yes (Hospitalization, Other)
  Sender: FDA-Public Use
  Company Number: 55837

PATIENT
  Age: 50 Year
  Sex: Male
  Weight: 59 kg

DRUGS (1)
  1. ETOPOSIDE [Suspect]
     Indication: ACUTE MYELOID LEUKAEMIA
     Dosage: 125MG DAILY
     Dates: start: 20081007, end: 20081116

REACTIONS (1)
  - FEBRILE NEUTROPENIA [None]
